FAERS Safety Report 12574814 (Version 1)
Quarter: 2016Q3

REPORT INFORMATION
  Report Type: Spontaneous
  Country: US (occurrence: US)
  Receive Date: 20160720
  Receipt Date: 20160720
  Transmission Date: 20161109
  Serious: No
  Sender: FDA-Public Use
  Company Number: US-ASTELLAS-2015US028478

PATIENT
  Age: 75 Year
  Sex: Female

DRUGS (2)
  1. VESICARE [Suspect]
     Active Substance: SOLIFENACIN SUCCINATE
     Indication: PRODUCT USED FOR UNKNOWN INDICATION
     Route: 065
  2. KLONOPIN [Concomitant]
     Active Substance: CLONAZEPAM
     Indication: PRODUCT USED FOR UNKNOWN INDICATION
     Dosage: UNK UNK, UNKNOWN FREQ.
     Route: 065

REACTIONS (8)
  - Urinary retention [Unknown]
  - Memory impairment [Unknown]
  - Dyspepsia [Unknown]
  - Abdominal discomfort [Unknown]
  - Dysuria [Unknown]
  - Anxiety [Unknown]
  - Chest discomfort [Unknown]
  - Urine flow decreased [Unknown]

NARRATIVE: CASE EVENT DATE: 20150809
